FAERS Safety Report 8030264-7 (Version None)
Quarter: 2012Q1

REPORT INFORMATION
  Report Type: 
  Country: None (occurrence: None)
  Receive Date: 20120109
  Receipt Date: 20120104
  Transmission Date: 20120608
  Serious: Yes (Hospitalization, Other)
  Sender: FDA-Public Use
  Company Number: US-ABBOTT-11P-163-0726242-00

PATIENT
  Sex: Female
  Weight: 76.272 kg

DRUGS (11)
  1. MICARDIS [Concomitant]
     Indication: HYPERTENSION
  2. HUMIRA [Suspect]
     Dates: end: 20111001
  3. HUMIRA [Suspect]
     Indication: PSORIATIC ARTHROPATHY
     Dates: start: 20080101
  4. UNKNOWN MEDICATION [Concomitant]
     Indication: BLOOD PRESSURE
  5. UR CREAM [Concomitant]
     Indication: PSORIASIS
  6. PREDNISOLONE [Suspect]
     Indication: PNEUMONIA
     Dates: start: 20100501, end: 20100501
  7. HUMIRA [Suspect]
     Indication: PSORIASIS
     Dates: end: 20100501
  8. CARVEDILOL [Suspect]
     Indication: HYPERTENSION
     Dates: start: 20100501, end: 20100501
  9. FOSAMAX [Concomitant]
     Indication: OSTEOPOROSIS
  10. CLOBETASOL [Concomitant]
     Indication: PSORIASIS
  11. CITALOPRAM HYDROBROMIDE [Concomitant]
     Indication: ANXIETY

REACTIONS (25)
  - VARICOSE VEIN [None]
  - JOINT SWELLING [None]
  - HALLUCINATION [None]
  - HYPOTENSION [None]
  - JOINT INJURY [None]
  - CELLULITIS [None]
  - STAPHYLOCOCCAL INFECTION [None]
  - BRONCHITIS [None]
  - HAEMATOMA [None]
  - PNEUMONIA [None]
  - UPPER RESPIRATORY TRACT INFECTION [None]
  - NASOPHARYNGITIS [None]
  - BLOOD PRESSURE INCREASED [None]
  - PHLEBITIS [None]
  - FEELING HOT [None]
  - HYPERTENSION [None]
  - HEAT STROKE [None]
  - OEDEMA PERIPHERAL [None]
  - VISION BLURRED [None]
  - BLISTER [None]
  - INCISION SITE OEDEMA [None]
  - INCISION SITE PAIN [None]
  - COUGH [None]
  - INFECTION [None]
  - SPLINTER [None]
